FAERS Safety Report 5148754-3 (Version None)
Quarter: 2006Q4

REPORT INFORMATION
  Report Type: 
  Country: None (occurrence: None)
  Receive Date: 20061107
  Receipt Date: 20061025
  Transmission Date: 20070319
  Serious: Yes (Other)
  Sender: FDA-Public Use
  Company Number: 231948

PATIENT

DRUGS (1)
  1. AVASTIN (BEVACIZUMAV) PWDR + SOLVENT, INFUSION SOLN, 100MG [Suspect]
     Indication: NON-SMALL CELL LUNG CANCER

REACTIONS (3)
  - BRAIN NEOPLASM [None]
  - DISEASE PROGRESSION [None]
  - METASTASES TO CENTRAL NERVOUS SYSTEM [None]
